FAERS Safety Report 12560583 (Version 1)
Quarter: 2016Q3

REPORT INFORMATION
  Report Type: Spontaneous
  Country: US (occurrence: US)
  Receive Date: 20160715
  Receipt Date: 20160715
  Transmission Date: 20161109
  Serious: No
  Sender: FDA-Public Use
  Company Number: US-JNJFOC-20160516106

PATIENT
  Age: 53 Year
  Sex: Female

DRUGS (2)
  1. WOMENS ROGAINE UNSCENTED [Suspect]
     Active Substance: MINOXIDIL
     Indication: ALOPECIA
     Dosage: 1/2 CAPFUL,APPLY TO SCALP
     Route: 061
     Dates: start: 20141120
  2. WOMENS ROGAINE UNSCENTED [Suspect]
     Active Substance: MINOXIDIL
     Indication: ALOPECIA SCARRING
     Dosage: 1/2 CAPFUL,APPLY TO SCALP
     Route: 061
     Dates: start: 20141120

REACTIONS (4)
  - Product use issue [Unknown]
  - Drug ineffective for unapproved indication [Unknown]
  - Off label use [Unknown]
  - Drug administered at inappropriate site [Unknown]

NARRATIVE: CASE EVENT DATE: 20141120
